FAERS Safety Report 6841486-2 (Version None)
Quarter: 2010Q3

REPORT INFORMATION
  Report Type: 
  Country: None (occurrence: None)
  Receive Date: 20100714
  Receipt Date: 20070705
  Transmission Date: 20110219
  Serious: No
  Sender: FDA-Public Use
  Company Number: US-PFIZER INC-2007056649

PATIENT
  Sex: Female
  Weight: 88.636 kg

DRUGS (6)
  1. CHANTIX [Suspect]
     Indication: SMOKING CESSATION THERAPY
     Dates: start: 20070627
  2. LASIX [Concomitant]
  3. NORVASC [Concomitant]
  4. COZAAR [Concomitant]
  5. AMBIEN [Concomitant]
  6. PAXIL [Concomitant]

REACTIONS (3)
  - DEPRESSION [None]
  - MOOD ALTERED [None]
  - SOMNOLENCE [None]
